FAERS Safety Report 15007598 (Version 1)
Quarter: 2018Q2

REPORT INFORMATION
  Report Type: Report from Study
  Country: IT (occurrence: IT)
  Receive Date: 20180613
  Receipt Date: 20180613
  Transmission Date: 20180711
  Serious: Yes (Other)
  Sender: FDA-Public Use
  Company Number: IT-MYLANLABS-2018M1039443

PATIENT
  Age: 39 Year
  Sex: Female

DRUGS (5)
  1. PANACEF [Suspect]
     Active Substance: CEFACLOR
     Indication: PRODUCT USED FOR UNKNOWN INDICATION
     Dosage: 2MG/ML
     Route: 023
  2. AMPICILLIN [Suspect]
     Active Substance: AMPICILLIN
     Indication: PRODUCT USED FOR UNKNOWN INDICATION
     Route: 065
  3. KEFORAL                            /00145501/ [Suspect]
     Active Substance: CEPHALEXIN
     Indication: PRODUCT USED FOR UNKNOWN INDICATION
     Dosage: 2MG/ML
     Route: 023
  4. KEFORAL                            /00145501/ [Suspect]
     Active Substance: CEPHALEXIN
     Route: 061
  5. PANACEF [Suspect]
     Active Substance: CEFACLOR
     Route: 061

REACTIONS (3)
  - Therapeutic product cross-reactivity [Unknown]
  - Type IV hypersensitivity reaction [Unknown]
  - Rash maculo-papular [Unknown]
